FAERS Safety Report 4332573-1 (Version None)
Quarter: 2004Q2

REPORT INFORMATION
  Report Type: 
  Country: None (occurrence: None)
  Receive Date: 20040401
  Receipt Date: 20040319
  Transmission Date: 20050107
  Serious: Yes (Death, Life-Threatening)
  Sender: FDA-Public Use
  Company Number: 200410065BYL

PATIENT
  Age: 51 Year
  Sex: Male
  Weight: 85 kg

DRUGS (4)
  1. ASPIRIN [Suspect]
     Indication: MYOCARDIAL INFARCTION
     Dosage: 100 MG, QD, ORAL
     Route: 048
     Dates: start: 20030624, end: 20040105
  2. LIPITOR [Suspect]
     Indication: HYPERLIPIDAEMIA
     Dosage: 10 MG, QD, ORAL
     Route: 048
     Dates: start: 20030624, end: 20031227
  3. TICPILONE (TICLOPIDINE HYDROCHLORIDE) [Suspect]
     Indication: MYOCARDIAL INFARCTION
     Dosage: 100 MG, QD, ORAL
     Route: 048
     Dates: start: 20030809, end: 20031227
  4. TANATRIL (IMIDAPRIL HYDROCHLORIDE) [Suspect]
     Indication: HYPERTENSION
     Dosage: 5 MG, QD, ORAL
     Route: 048
     Dates: start: 20030809, end: 20040108

REACTIONS (1)
  - HEPATIC FAILURE [None]
